FAERS Safety Report 23916385 (Version 1)
Quarter: 2024Q2

REPORT INFORMATION
  Report Type: Spontaneous
  Country: US (occurrence: US)
  Receive Date: 20240529
  Receipt Date: 20240529
  Transmission Date: 20240716
  Serious: No
  Sender: FDA-Public Use
  Company Number: US-BEH-2024172354

PATIENT
  Age: 65 Year
  Sex: Female

DRUGS (13)
  1. HIZENTRA [Suspect]
     Active Substance: HUMAN IMMUNOGLOBULIN G
     Indication: Immunodeficiency common variable
     Dosage: 10 G, QW
     Route: 058
     Dates: start: 202401
  2. ASPIRIN [Concomitant]
     Active Substance: ASPIRIN
  3. FLUTICASONE [Concomitant]
     Active Substance: FLUTICASONE
  4. MELOXICAM [Concomitant]
     Active Substance: MELOXICAM
  5. METFORMIN [Concomitant]
     Active Substance: METFORMIN HYDROCHLORIDE
  6. METOPROLOL [Concomitant]
     Active Substance: METOPROLOL
  7. OLMESARTAN [Concomitant]
     Active Substance: OLMESARTAN
  8. OZEMPIC [Concomitant]
     Active Substance: SEMAGLUTIDE
  9. PANTOPRAZOLE [Concomitant]
     Active Substance: PANTOPRAZOLE
  10. PRAVASTATIN [Concomitant]
     Active Substance: PRAVASTATIN
  11. PREGABALIN [Concomitant]
     Active Substance: PREGABALIN
  12. PROVENTIL [Concomitant]
     Active Substance: ALBUTEROL
  13. TRESIBA [Concomitant]
     Active Substance: INSULIN DEGLUDEC

REACTIONS (1)
  - Sinusitis [Recovered/Resolved]

NARRATIVE: CASE EVENT DATE: 20240101
